FAERS Safety Report 24687970 (Version 3)
Quarter: 2025Q3

REPORT INFORMATION
  Report Type: Spontaneous
  Country: US (occurrence: US)
  Receive Date: 20241202
  Receipt Date: 20250725
  Transmission Date: 20251020
  Serious: No
  Sender: SANOFI AVENTIS
  Company Number: US-SA-2024SA353481

PATIENT
  Sex: Male
  Weight: 106.82 kg

DRUGS (12)
  1. DUPIXENT [Suspect]
     Active Substance: DUPILUMAB
     Indication: Nasal polyps
     Dosage: 300 MG, QOW
     Route: 058
  2. DUPIXENT [Suspect]
     Active Substance: DUPILUMAB
     Indication: Illness
  3. TRAVOPROST [Concomitant]
     Active Substance: TRAVOPROST
  4. CHLORTHALIDONE [Concomitant]
     Active Substance: CHLORTHALIDONE
  5. AMLODIPINE BESYLATE [Concomitant]
     Active Substance: AMLODIPINE BESYLATE
  6. TIMOLOL MALEATE [Concomitant]
     Active Substance: TIMOLOL MALEATE
  7. LIPITOR [Concomitant]
     Active Substance: ATORVASTATIN CALCIUM
  8. GABAPENTIN [Concomitant]
     Active Substance: GABAPENTIN
  9. ALLOPURINOL [Concomitant]
     Active Substance: ALLOPURINOL
  10. NORVASC [Concomitant]
     Active Substance: AMLODIPINE BESYLATE
  11. TIMOLOL [Concomitant]
     Active Substance: TIMOLOL
  12. CABOMETYX [Concomitant]
     Active Substance: CABOZANTINIB S-MALATE

REACTIONS (5)
  - Joint stiffness [Unknown]
  - Feeling abnormal [Unknown]
  - Paranasal sinus hypersecretion [Unknown]
  - Arthralgia [Recovered/Resolved]
  - Intentional dose omission [Unknown]
